FAERS Safety Report 6618110-7 (Version None)
Quarter: 2010Q1

REPORT INFORMATION
  Report Type: 
  Country: None (occurrence: None)
  Receive Date: 20100302
  Receipt Date: 20100224
  Transmission Date: 20100710
  Serious: Yes (Other)
  Sender: FDA-Public Use
  Company Number: 2010SP011651

PATIENT
  Sex: Female

DRUGS (2)
  1. DESLORATADINE [Suspect]
     Indication: DYSPNOEA
  2. DESLORATADINE [Suspect]
     Indication: URTICARIA

REACTIONS (1)
  - ANGIOEDEMA [None]
